FAERS Safety Report 7563558-X (Version None)
Quarter: 2011Q2

REPORT INFORMATION
  Report Type: 
  Country: None (occurrence: None)
  Receive Date: 20110622
  Receipt Date: 20110608
  Transmission Date: 20111010
  Serious: Yes (Other)
  Sender: FDA-Public Use
  Company Number: US-JNJFOC-20110300198

PATIENT
  Sex: Female

DRUGS (24)
  1. SINGULAIR [Concomitant]
  2. VERPAMIL HCL [Concomitant]
  3. LORATADINE [Concomitant]
  4. CINNAMON [Concomitant]
  5. VITAMIN D [Concomitant]
  6. VITAMIN B [Concomitant]
  7. HYDROXYCHLOROQUINE SULFATE [Concomitant]
  8. VICODIN [Concomitant]
  9. FISH OIL [Concomitant]
  10. REMICADE [Suspect]
     Indication: PRODUCT USED FOR UNKNOWN INDICATION
     Route: 042
  11. AMLODIPINE [Concomitant]
  12. OTHER THERAPEUTIC PRODUCT UNSPECIFIED [Concomitant]
  13. PROVENTIL GENTLEHALER [Concomitant]
  14. MECLIZINE [Concomitant]
  15. STOOL SOFTENER [Concomitant]
  16. FOLIC ACID [Concomitant]
  17. NASONEX [Concomitant]
     Dosage: 2 TIMES DAILY AS NEEDED
  18. SULFASALAZINE [Concomitant]
  19. PREDNISONE [Concomitant]
  20. METFORMIN HCL [Concomitant]
  21. POTASSIUM CHLORIDE [Concomitant]
  22. LYRICA [Concomitant]
  23. OTHER THERAPEUTIC PRODUCT UNSPECIFIED [Concomitant]
     Dosage: 2 TIMES DAILY AS NEEDED
  24. ADVAIR DISKUS 100/50 [Concomitant]

REACTIONS (10)
  - VIITH NERVE PARALYSIS [None]
  - GAIT DISTURBANCE [None]
  - FALL [None]
  - PAIN [None]
  - CEREBROVASCULAR ACCIDENT [None]
  - CERVICAL VERTEBRAL FRACTURE [None]
  - ADVERSE EVENT [None]
  - ERYTHEMA [None]
  - ROAD TRAFFIC ACCIDENT [None]
  - DRUG INEFFECTIVE [None]
